FAERS Safety Report 19197647 (Version 1)
Quarter: 2021Q2

REPORT INFORMATION
  Report Type: Spontaneous
  Country: US (occurrence: US)
  Receive Date: 20210429
  Receipt Date: 20210429
  Transmission Date: 20210717
  Serious: No
  Sender: FDA-Public Use
  Company Number: US-GALDERMA-US2021005488

PATIENT
  Age: 36 Year
  Sex: Female

DRUGS (27)
  1. PROACTIV MD DAILY OIL CONTROL SPF 30 [Suspect]
     Active Substance: AVOBENZONE\OCTISALATE\OCTOCRYLENE
     Indication: SEBORRHOEA
  2. PROACTIV EYE BRIGHTENING SERUM [Concomitant]
     Active Substance: COSMETICS
     Indication: SKIN HYPERPIGMENTATION
     Route: 061
     Dates: start: 20200225, end: 202007
  3. PROACTIV MD BALANCING TONER [Concomitant]
     Active Substance: COSMETICS
     Indication: DILATED PORES
  4. PROACTIV CLARIFYING NIGHT ACNE TREATMENT [Concomitant]
     Active Substance: SALICYLIC ACID
     Indication: SEBORRHOEA
  5. PROACTIV MD DAILY OIL CONTROL SPF 30 [Suspect]
     Active Substance: AVOBENZONE\OCTISALATE\OCTOCRYLENE
     Indication: SKIN HYPERPIGMENTATION
     Route: 061
     Dates: start: 20200225, end: 202007
  6. PROACTIV MD DEEP CLEANSING FACE WASH [Concomitant]
     Active Substance: COSMETICS
     Indication: SKIN HYPERPIGMENTATION
     Route: 061
     Dates: start: 20200225, end: 202007
  7. PROACTIVPLUS SKIN SMOOTHING EXFOLIATOR [Concomitant]
     Active Substance: BENZOYL PEROXIDE
     Indication: SEBORRHOEA
  8. PROACTIV PLUS PORE TARGETING TREATMENT [Concomitant]
     Active Substance: BENZOYL PEROXIDE
     Indication: SEBORRHOEA
  9. PROACTIV MD ADAPALENE ACNE TREATMENT [Suspect]
     Active Substance: ADAPALENE
     Indication: SKIN HYPERPIGMENTATION
     Dosage: 0.1%
     Route: 061
     Dates: start: 20200225, end: 202007
  10. PROACTIV MD DAILY OIL CONTROL SPF 30 [Suspect]
     Active Substance: AVOBENZONE\OCTISALATE\OCTOCRYLENE
     Indication: DILATED PORES
  11. PROACTIV MD DEEP CLEANSING FACE WASH [Concomitant]
     Active Substance: COSMETICS
     Indication: SEBORRHOEA
  12. PROACTIV PLUS PORE TARGETING TREATMENT [Concomitant]
     Active Substance: BENZOYL PEROXIDE
     Indication: DILATED PORES
  13. PROACTIV MD ADAPALENE ACNE TREATMENT [Suspect]
     Active Substance: ADAPALENE
     Indication: SEBORRHOEA
  14. PROACTIV MD DEEP CLEANSING FACE WASH [Concomitant]
     Active Substance: COSMETICS
     Indication: DILATED PORES
  15. PROACTIV EYE BRIGHTENING SERUM [Concomitant]
     Active Substance: COSMETICS
     Indication: SEBORRHOEA
  16. PROACTIV PLUS COMPLEXION PERFECTING HYDRATOR [Concomitant]
     Active Substance: SALICYLIC ACID
     Indication: SKIN HYPERPIGMENTATION
     Route: 061
     Dates: start: 20200225
  17. PROACTIV PLUS COMPLEXION PERFECTING HYDRATOR [Concomitant]
     Active Substance: SALICYLIC ACID
     Indication: SEBORRHOEA
  18. PROACTIV EYE BRIGHTENING SERUM [Concomitant]
     Active Substance: COSMETICS
     Indication: DILATED PORES
  19. PROACTIV MD BALANCING TONER [Concomitant]
     Active Substance: COSMETICS
     Indication: SKIN HYPERPIGMENTATION
     Route: 061
     Dates: start: 20200225, end: 202007
  20. PROACTIV MD BALANCING TONER [Concomitant]
     Active Substance: COSMETICS
     Indication: SEBORRHOEA
  21. PROACTIV CLARIFYING NIGHT ACNE TREATMENT [Concomitant]
     Active Substance: SALICYLIC ACID
     Indication: SKIN HYPERPIGMENTATION
     Route: 061
     Dates: start: 20200225, end: 202007
  22. PROACTIV CLARIFYING NIGHT ACNE TREATMENT [Concomitant]
     Active Substance: SALICYLIC ACID
     Indication: DILATED PORES
  23. PROACTIV MD ADAPALENE ACNE TREATMENT [Suspect]
     Active Substance: ADAPALENE
     Indication: DILATED PORES
  24. PROACTIV PLUS PORE TARGETING TREATMENT [Concomitant]
     Active Substance: BENZOYL PEROXIDE
     Indication: SKIN HYPERPIGMENTATION
     Route: 061
     Dates: start: 20200225
  25. PROACTIV PLUS COMPLEXION PERFECTING HYDRATOR [Concomitant]
     Active Substance: SALICYLIC ACID
     Indication: DILATED PORES
  26. PROACTIVPLUS SKIN SMOOTHING EXFOLIATOR [Concomitant]
     Active Substance: BENZOYL PEROXIDE
     Indication: SKIN HYPERPIGMENTATION
     Route: 061
     Dates: start: 20200225
  27. PROACTIVPLUS SKIN SMOOTHING EXFOLIATOR [Concomitant]
     Active Substance: BENZOYL PEROXIDE
     Indication: DILATED PORES

REACTIONS (8)
  - Erythema [Recovering/Resolving]
  - Dry skin [Recovering/Resolving]
  - Skin irritation [Recovering/Resolving]
  - Product use in unapproved indication [Recovered/Resolved]
  - Inappropriate schedule of product administration [Recovered/Resolved]
  - Overdose [Recovered/Resolved]
  - Drug ineffective for unapproved indication [Recovered/Resolved]
  - Skin burning sensation [Recovering/Resolving]

NARRATIVE: CASE EVENT DATE: 20200225
